FAERS Safety Report 9605742 (Version 2)
Quarter: 2013Q4

REPORT INFORMATION
  Report Type: Spontaneous
  Country: US (occurrence: US)
  Receive Date: 20131008
  Receipt Date: 20131008
  Transmission Date: 20140711
  Serious: Yes (Other)
  Sender: FDA-Public Use
  Company Number: US-AMGEN-USASP2012071047

PATIENT
  Age: 54 Year
  Sex: Female
  Weight: 70.3 kg

DRUGS (6)
  1. ENBREL [Suspect]
     Indication: PRODUCT USED FOR UNKNOWN INDICATION
     Dosage: 50 MG, QWK
     Route: 058
     Dates: end: 201212
  2. VITAMIN D                          /00107901/ [Concomitant]
     Dosage: 50000 UNIT, UNK
  3. CRANBERRY                          /01512301/ [Concomitant]
     Dosage: UNK
  4. PLAQUENIL                          /00072602/ [Concomitant]
     Dosage: 200 MG, UNK
  5. MOBIC [Concomitant]
     Dosage: 7.5 MG, UNK
  6. FOLIC ACID [Concomitant]
     Dosage: 1 MG, UNK

REACTIONS (5)
  - Activities of daily living impaired [Unknown]
  - Arthralgia [Unknown]
  - Nodule [Unknown]
  - Tendon pain [Unknown]
  - Muscle spasms [Unknown]
